FAERS Safety Report 18683244 (Version 1)
Quarter: 2020Q4

REPORT INFORMATION
  Report Type: Spontaneous
  Country: US (occurrence: US)
  Receive Date: 20201230
  Receipt Date: 20201230
  Transmission Date: 20210114
  Serious: No
  Sender: FDA-Public Use
  Company Number: US-IPSEN BIOPHARMACEUTICALS, INC.-2020-26104

PATIENT
  Sex: Female
  Weight: 83.46 kg

DRUGS (1)
  1. SOMATULINE DEPOT [Suspect]
     Active Substance: LANREOTIDE ACETATE
     Indication: NEUROENDOCRINE TUMOUR
     Dosage: STRENGTH: 120 MG/0.5 ML
     Route: 058

REACTIONS (2)
  - Abdominal distension [Unknown]
  - Fatigue [Unknown]
